FAERS Safety Report 5554548-7 (Version None)
Quarter: 2007Q4

REPORT INFORMATION
  Report Type: 
  Country: None (occurrence: None)
  Receive Date: 20071213
  Receipt Date: 20070730
  Transmission Date: 20080405
  Serious: No
  Sender: FDA-Public Use
  Company Number: US-AMGEN-KDL231708

PATIENT
  Sex: Female

DRUGS (4)
  1. ENBREL [Suspect]
     Indication: RHEUMATOID ARTHRITIS
  2. NABUMETONE [Concomitant]
  3. LEFLUNOMIDE [Concomitant]
  4. PROTONIX [Concomitant]

REACTIONS (1)
  - ICHTHYOSIS [None]
